FAERS Safety Report 12124072 (Version 2)
Quarter: 2016Q1

REPORT INFORMATION
  Report Type: Spontaneous
  Country: BA (occurrence: BA)
  Receive Date: 20160228
  Receipt Date: 20160303
  Transmission Date: 20160526
  Serious: Yes (Other)
  Sender: FDA-Public Use
  Company Number: PHHY2016BA023582

PATIENT
  Age: 4 Year
  Sex: Female

DRUGS (6)
  1. APOTEX HYDROXYCHLOROQUINE [Suspect]
     Active Substance: HYDROXYCHLOROQUINE
     Indication: DERMATOMYOSITIS
     Dosage: UNK
     Route: 065
     Dates: start: 201407
  2. METHYLPREDNISOLONE. [Suspect]
     Active Substance: METHYLPREDNISOLONE
     Indication: DERMATOMYOSITIS
     Dosage: 30 MG/KG, THREE BOLUSES
     Route: 065
     Dates: start: 201407
  3. METHOTREXATE SODIUM. [Suspect]
     Active Substance: METHOTREXATE SODIUM
     Indication: DERMATOMYOSITIS
     Dosage: UNK
     Route: 065
     Dates: start: 201407
  4. CICLOSPORIN [Suspect]
     Active Substance: CYCLOSPORINE
     Indication: DERMATOMYOSITIS
     Route: 065
  5. METHOTREXATE SODIUM. [Suspect]
     Active Substance: METHOTREXATE SODIUM
     Dosage: 20 MG/M2, UNK
     Route: 058
  6. METHYLPREDNISOLONE. [Suspect]
     Active Substance: METHYLPREDNISOLONE
     Dosage: 2 MG/KG, UNK
     Route: 065

REACTIONS (9)
  - Myositis [Not Recovered/Not Resolved]
  - Skin atrophy [Unknown]
  - Disease recurrence [Unknown]
  - Eyelid rash [Unknown]
  - Erythema [Unknown]
  - Nasal oedema [Unknown]
  - Product use issue [Unknown]
  - Dermatomyositis [Unknown]
  - Ulcer [Unknown]

NARRATIVE: CASE EVENT DATE: 201410
